FAERS Safety Report 22209131 (Version 1)
Quarter: 2023Q2

REPORT INFORMATION
  Report Type: Spontaneous
  Country: GB (occurrence: GB)
  Receive Date: 20230413
  Receipt Date: 20230413
  Transmission Date: 20230722
  Serious: Yes (Life-Threatening, Other)
  Sender: FDA-Public Use
  Company Number: GB-ASTELLAS-2023EU000685

PATIENT
  Sex: Female

DRUGS (17)
  1. BENDAMUSTINE HYDROCHLORIDE [Suspect]
     Active Substance: BENDAMUSTINE HYDROCHLORIDE
     Indication: Diffuse large B-cell lymphoma
     Dosage: (2ND SYSTEMIC TREATMENT)
     Route: 042
     Dates: start: 20140104, end: 20140110
  2. GEMCITABINE [Suspect]
     Active Substance: GEMCITABINE
     Indication: Diffuse large B-cell lymphoma
     Route: 065
     Dates: start: 20230110
  3. LENALIDOMIDE [Suspect]
     Active Substance: LENALIDOMIDE
     Indication: Diffuse large B-cell lymphoma
     Dosage: (5TH SYSTEMIC TREATMENT)
     Route: 065
     Dates: start: 20190101, end: 20190105
  4. OXALIPLATIN [Suspect]
     Active Substance: OXALIPLATIN
     Indication: Diffuse large B-cell lymphoma
     Route: 065
     Dates: start: 20230110
  5. PREDNISONE [Suspect]
     Active Substance: PREDNISONE
     Indication: Diffuse large B-cell lymphoma
     Dosage: (1ST SYSTEMIC TREATMENT)
     Route: 065
     Dates: start: 20130103, end: 20130108
  6. PREDNISONE [Suspect]
     Active Substance: PREDNISONE
     Dosage: (4TH SYSTEMIC TREATMENT)
     Route: 065
     Dates: start: 20170110
  7. VINCRISTINE [Suspect]
     Active Substance: VINCRISTINE
     Indication: Diffuse large B-cell lymphoma
     Dosage: (1ST SYSTEMIC TREATMENT)
     Route: 065
     Dates: start: 20130103, end: 20130108
  8. VINCRISTINE [Suspect]
     Active Substance: VINCRISTINE
     Route: 065
     Dates: start: 20170110
  9. VINCRISTINE SULFATE [Suspect]
     Active Substance: VINCRISTINE SULFATE
     Indication: Diffuse large B-cell lymphoma
     Dosage: (4TH SYSTEMIC TREATMENT)
     Route: 065
     Dates: start: 20170110
  10. DOXORUBICIN HYDROCHLORIDE [Suspect]
     Active Substance: DOXORUBICIN HYDROCHLORIDE
     Indication: Diffuse large B-cell lymphoma
     Dosage: .(1ST SYSTEMIC TREATMENT)
     Route: 065
     Dates: start: 20130103, end: 20130108
  11. RITUXIMAB [Suspect]
     Active Substance: RITUXIMAB
     Indication: Diffuse large B-cell lymphoma
     Dosage: (1ST SYSTEMIC TREATMENT)
     Route: 065
     Dates: start: 20130103, end: 20130108
  12. RITUXIMAB [Suspect]
     Active Substance: RITUXIMAB
     Dosage: (4TH SYSTEMIC TREATMENT)
     Route: 065
     Dates: start: 20170110
  13. RITUXIMAB [Suspect]
     Active Substance: RITUXIMAB
     Dosage: (6TH SYSTEMIC TREATMENT)
     Route: 065
     Dates: start: 20210601, end: 20211101
  14. RITUXIMAB [Suspect]
     Active Substance: RITUXIMAB
     Route: 065
     Dates: start: 20230110
  15. CHLORAMBUCIL [Suspect]
     Active Substance: CHLORAMBUCIL
     Indication: Diffuse large B-cell lymphoma
     Dosage: (6TH SYSTEMIC TREATMENT)
     Route: 065
     Dates: start: 20210601, end: 20211101
  16. CYCLOPHOSPHAMIDE [Suspect]
     Active Substance: CYCLOPHOSPHAMIDE
     Indication: Diffuse large B-cell lymphoma
     Dosage: (1ST SYSTEMIC TREATMENT)
     Route: 065
     Dates: start: 20130103, end: 20130108
  17. CYCLOPHOSPHAMIDE [Suspect]
     Active Substance: CYCLOPHOSPHAMIDE
     Dosage: (4TH SYSTEMIC TREATMENT)
     Route: 065
     Dates: start: 20170110

REACTIONS (2)
  - Malignant neoplasm progression [Unknown]
  - Off label use [Unknown]

NARRATIVE: CASE EVENT DATE: 20140104
